FAERS Safety Report 18971803 (Version 1)
Quarter: 2021Q1

REPORT INFORMATION
  Report Type: Spontaneous
  Country: HK (occurrence: HK)
  Receive Date: 20210305
  Receipt Date: 20210305
  Transmission Date: 20210420
  Serious: Yes (Other)
  Sender: FDA-Public Use
  Company Number: HK-ROCHE-2783349

PATIENT
  Age: 60 Year
  Sex: Female

DRUGS (14)
  1. LUCENTIS [Suspect]
     Active Substance: RANIBIZUMAB
     Route: 065
     Dates: start: 202101
  2. BROLUCIZUMAB. [Concomitant]
     Active Substance: BROLUCIZUMAB
     Indication: RETINAL VEIN OCCLUSION
  3. AFLIBERCEPT [Concomitant]
     Active Substance: AFLIBERCEPT
     Route: 065
     Dates: start: 202008
  4. AFLIBERCEPT [Concomitant]
     Active Substance: AFLIBERCEPT
     Route: 065
     Dates: start: 202012
  5. AFLIBERCEPT [Concomitant]
     Active Substance: AFLIBERCEPT
     Route: 065
     Dates: start: 202010
  6. AFLIBERCEPT [Concomitant]
     Active Substance: AFLIBERCEPT
     Route: 065
     Dates: start: 202101
  7. LUCENTIS [Suspect]
     Active Substance: RANIBIZUMAB
     Indication: NEOVASCULAR AGE-RELATED MACULAR DEGENERATION
     Route: 065
     Dates: start: 202010
  8. AFLIBERCEPT [Concomitant]
     Active Substance: AFLIBERCEPT
     Route: 065
     Dates: start: 202007
  9. LUCENTIS [Suspect]
     Active Substance: RANIBIZUMAB
     Route: 065
     Dates: start: 202012
  10. AFLIBERCEPT [Concomitant]
     Active Substance: AFLIBERCEPT
     Route: 065
     Dates: start: 2019
  11. LUCENTIS [Suspect]
     Active Substance: RANIBIZUMAB
     Indication: RETINAL VEIN OCCLUSION
     Route: 065
     Dates: start: 202008
  12. BROLUCIZUMAB. [Concomitant]
     Active Substance: BROLUCIZUMAB
     Indication: NEOVASCULAR AGE-RELATED MACULAR DEGENERATION
     Route: 065
     Dates: start: 202101
  13. AFLIBERCEPT [Concomitant]
     Active Substance: AFLIBERCEPT
     Indication: RETINAL VEIN OCCLUSION
     Route: 065
     Dates: start: 2016
  14. AFLIBERCEPT [Concomitant]
     Active Substance: AFLIBERCEPT
     Indication: NEOVASCULAR AGE-RELATED MACULAR DEGENERATION
     Route: 065
     Dates: start: 201704

REACTIONS (2)
  - Subretinal fluid [Unknown]
  - Detachment of retinal pigment epithelium [Unknown]
